FAERS Safety Report 14068471 (Version 2)
Quarter: 2018Q2

REPORT INFORMATION
  Report Type: Spontaneous
  Country: US (occurrence: US)
  Receive Date: 20171010
  Receipt Date: 20180504
  Transmission Date: 20180711
  Serious: No
  Sender: FDA-Public Use
  Company Number: US-PFIZER INC-2017427394

PATIENT

DRUGS (2)
  1. DOCETAXEL. [Suspect]
     Active Substance: DOCETAXEL
     Indication: BREAST CANCER
     Dosage: UNK UNK, WEEKLY (6 CYCLES)
     Dates: start: 20121203, end: 20131209
  2. DOCETAXEL. [Suspect]
     Active Substance: DOCETAXEL
     Dosage: UNK UNK, CYCLIC (EVERY 3 WEEKS, COMBINATION OF 3 DRUGS WHICH INCLUDED TAXOTERE)
     Dates: start: 20121203, end: 20131209

REACTIONS (5)
  - Alopecia [Recovering/Resolving]
  - Hair texture abnormal [Recovering/Resolving]
  - Madarosis [Recovering/Resolving]
  - Hair disorder [Recovering/Resolving]
  - Hair colour changes [Recovering/Resolving]

NARRATIVE: CASE EVENT DATE: 2012
